FAERS Safety Report 17441586 (Version 2)
Quarter: 2020Q1

REPORT INFORMATION
  Report Type: Spontaneous
  Country: CN (occurrence: CN)
  Receive Date: 20200220
  Receipt Date: 20200224
  Transmission Date: 20200409
  Serious: Yes (Other)
  Sender: FDA-Public Use
  Company Number: CN-BAYER-2020-028759

PATIENT
  Age: 76 Year
  Sex: Male

DRUGS (3)
  1. NEXAVAR [Suspect]
     Active Substance: SORAFENIB
     Indication: CHEMOTHERAPY
     Dosage: 0.4 G, BID
     Route: 048
     Dates: start: 20191109, end: 20191128
  2. NEXAVAR [Suspect]
     Active Substance: SORAFENIB
     Indication: METASTASES TO LUNG
  3. NEXAVAR [Suspect]
     Active Substance: SORAFENIB
     Indication: HEPATIC CANCER STAGE IV

REACTIONS (20)
  - Haemoptysis [Recovering/Resolving]
  - Essential hypertension [None]
  - Bone marrow failure [Recovering/Resolving]
  - Abdominal pain upper [Recovering/Resolving]
  - Liver injury [None]
  - Sputum retention [None]
  - Asthenia [None]
  - Blood loss anaemia [Recovering/Resolving]
  - Chest discomfort [None]
  - Cardiac failure [None]
  - Chronic obstructive pulmonary disease [None]
  - Type 2 diabetes mellitus [None]
  - Abdominal pain [Recovering/Resolving]
  - Dyspnoea [None]
  - Cancer pain [None]
  - Gastrointestinal haemorrhage [Recovering/Resolving]
  - Hyperuricaemia [None]
  - Platelet count decreased [Recovering/Resolving]
  - White blood cell count decreased [None]
  - Cough [None]

NARRATIVE: CASE EVENT DATE: 201911
